FAERS Safety Report 5719355-0 (Version None)
Quarter: 2008Q2

REPORT INFORMATION
  Report Type: 
  Country: None (occurrence: None)
  Receive Date: 20080428
  Receipt Date: 20080423
  Transmission Date: 20081010
  Serious: Yes (Death)
  Sender: FDA-Public Use
  Company Number: GB-BRISTOL-MYERS SQUIBB COMPANY-14161400

PATIENT
  Age: 69 Year
  Sex: Female
  Weight: 94 kg

DRUGS (13)
  1. PACLITAXEL [Suspect]
     Indication: OVARIAN CANCER
     Dosage: 1 DOSAGE FORM = APPROXIMATELY 10 ML (1ST CYC), 350 MG.
     Dates: start: 20080410
  2. ATENOLOL [Concomitant]
  3. DOMPERIDONE [Concomitant]
  4. DOXAZOSIN MESYLATE [Concomitant]
  5. FUROSEMIDE [Concomitant]
  6. GLYCERYL TRINITRATE [Concomitant]
  7. IRBESARTAN [Concomitant]
  8. ISOSORBIDE MONONITRATE [Concomitant]
  9. NICORANDIL [Concomitant]
  10. OMEPRAZOLE [Concomitant]
  11. PARACETAMOL [Concomitant]
  12. QUININE SULFATE [Concomitant]
  13. SIMVASTATIN [Concomitant]

REACTIONS (1)
  - CARDIO-RESPIRATORY ARREST [None]
